FAERS Safety Report 8777520 (Version 3)
Quarter: 2012Q4

REPORT INFORMATION
  Report Type: 
  Country: GB (occurrence: GB)
  Receive Date: 20120913
  Receipt Date: 20121029
  Transmission Date: 20130627
  Serious: Yes (Hospitalization, Other)
  Sender: FDA-Public Use
  Company Number: PHFR2012GB004783

PATIENT
  Sex: Male

DRUGS (1)
  1. CLOZARIL [Suspect]
     Indication: PSYCHOTIC DISORDER
     Dates: start: 20120518

REACTIONS (5)
  - Fall [Unknown]
  - Bursitis [Unknown]
  - Parkinson^s disease [Unknown]
  - Joint injury [Unknown]
  - Infection [Unknown]
